FAERS Safety Report 4284309-0 (Version None)
Quarter: 2004Q1

REPORT INFORMATION
  Report Type: 
  Country: None (occurrence: None)
  Receive Date: 20040130
  Receipt Date: 20040108
  Transmission Date: 20041129
  Serious: Yes (Hospitalization)
  Sender: FDA-Public Use
  Company Number: USA040156092

PATIENT
  Age: 58 Year
  Sex: Male
  Weight: 114 kg

DRUGS (6)
  1. HUMULIN 70/30 [Suspect]
     Dosage: 54 U/2 DAY
     Dates: start: 19950601
  2. COREG [Concomitant]
  3. ACTOS [Concomitant]
  4. LIPITOR [Concomitant]
  5. ASPIRIN [Concomitant]
  6. ZOCOR [Concomitant]

REACTIONS (4)
  - CARDIAC FAILURE CONGESTIVE [None]
  - CONDUCTION DISORDER [None]
  - HYPERTENSION [None]
  - MUSCULAR WEAKNESS [None]
